FAERS Safety Report 8676602 (Version 3)
Quarter: 2013Q4

REPORT INFORMATION
  Report Type: Spontaneous
  Country: US (occurrence: US)
  Receive Date: 20120722
  Receipt Date: 20131101
  Transmission Date: 20140711
  Serious: No
  Sender: FDA-Public Use
  Company Number: US-009507513-1207USA006018

PATIENT
  Age: 85 Year
  Sex: Male

DRUGS (5)
  1. JANUVIA [Suspect]
     Indication: DIABETES MELLITUS
     Dosage: 1/2 TABLE, QD
     Route: 048
     Dates: start: 2009
  2. AMLODIPINE [Concomitant]
  3. CYMBALTA [Concomitant]
  4. LOSARTAN POTASSIUM TABLETS [Concomitant]
  5. FUROSEMIDE [Concomitant]

REACTIONS (3)
  - Oral discomfort [Recovered/Resolved]
  - Wrong technique in drug usage process [Unknown]
  - Dysgeusia [Recovered/Resolved]
